FAERS Safety Report 6151633-6 (Version None)
Quarter: 2009Q2

REPORT INFORMATION
  Report Type: 
  Country: None (occurrence: None)
  Receive Date: 20090410
  Receipt Date: 20090331
  Transmission Date: 20091009
  Serious: Yes (Death, Hospitalization, Other)
  Sender: FDA-Public Use
  Company Number: JP-PFIZER INC-2008087196

PATIENT

DRUGS (3)
  1. VORICONAZOLE [Suspect]
     Dosage: 600 MG, 1X/DAY
     Route: 048
     Dates: start: 20080718, end: 20080718
  2. VORICONAZOLE [Suspect]
     Dosage: 400 MG, 1X/DAY
     Dates: start: 20080719, end: 20080801
  3. RESPLEN [Concomitant]
     Indication: COUGH
     Dosage: 30 MG, 3X/DAY
     Route: 048
     Dates: start: 20080718, end: 20080731

REACTIONS (4)
  - CARDIO-RESPIRATORY ARREST [None]
  - FALL [None]
  - INAPPROPRIATE ANTIDIURETIC HORMONE SECRETION [None]
  - SKIN LACERATION [None]
